FAERS Safety Report 20843595 (Version 2)
Quarter: 2022Q2

REPORT INFORMATION
  Report Type: Other
  Country: PL (occurrence: None)
  Receive Date: 20220518
  Receipt Date: 20220602
  Transmission Date: 20220721
  Serious: Yes (Hospitalization)
  Sender: FDA-Public Use
  Company Number: PL-DEXPHARM-20220747

PATIENT
  Age: 70 Year
  Sex: Male

DRUGS (2)
  1. CHLORHEXIDINE [Suspect]
     Active Substance: CHLORHEXIDINE
     Indication: Acanthamoeba keratitis
     Dosage: 0.02% CHLORHEXIDINE HOURLY DURING THE DAYTIME AND EVERY THREE HOURS AT NIGHT
     Route: 050
  2. 0.1% Propamidine [Concomitant]
     Indication: Acanthamoeba keratitis
     Dosage: 0.1% PROPAMIDINE HOURLY DURING THE DAYTIME AND EVERY THREE HOURS AT NIGHT

REACTIONS (2)
  - Eye irritation [Unknown]
  - Eye pruritus [Unknown]
